FAERS Safety Report 14890579 (Version 1)
Quarter: 2018Q2

REPORT INFORMATION
  Report Type: Spontaneous
  Country: US (occurrence: US)
  Receive Date: 20180426
  Receipt Date: 20180426
  Transmission Date: 20180711
  Serious: Yes (Life-Threatening, Hospitalization, Other)
  Sender: FDA-Public Use
  Company Number: None

PATIENT
  Age: 47 Year
  Sex: Male
  Weight: 75.3 kg

DRUGS (14)
  1. HUMIRA [Suspect]
     Active Substance: ADALIMUMAB
     Dosage: ?          QUANTITY:1 DF DOSAGE FORM;?
  2. VALACYCLOVIR [Concomitant]
     Active Substance: VALACYCLOVIR HYDROCHLORIDE
  3. MIRTAZAPINE. [Concomitant]
     Active Substance: MIRTAZAPINE
  4. ORGANO-GERMANIUM GE-132 [Concomitant]
  5. GABAPENTIN. [Concomitant]
     Active Substance: GABAPENTIN
  6. MELATONIN [Concomitant]
     Active Substance: MELATONIN
  7. AZATHIOPRINE. [Suspect]
     Active Substance: AZATHIOPRINE
     Indication: CROHN^S DISEASE
     Dosage: ?          QUANTITY:5 DF DOSAGE FORM;?
     Route: 048
     Dates: start: 199510, end: 20160501
  8. LEVETIRACETAM. [Concomitant]
     Active Substance: LEVETIRACETAM
  9. INFLAMAZYME [Concomitant]
  10. MESALAMINE. [Concomitant]
     Active Substance: MESALAMINE
  11. OMEPRAZOLE. [Concomitant]
     Active Substance: OMEPRAZOLE
  12. MORPHINE SR [Concomitant]
     Active Substance: MORPHINE
  13. OXYCODONE [Concomitant]
     Active Substance: OXYCODONE
  14. CURCUMIN W/MERIVA [Concomitant]

REACTIONS (2)
  - Arthralgia [None]
  - Sarcoma [None]

NARRATIVE: CASE EVENT DATE: 20160101
